FAERS Safety Report 9524773 (Version 2)
Quarter: 2014Q2

REPORT INFORMATION
  Report Type: Spontaneous
  Country: FR (occurrence: FR)
  Receive Date: 20130916
  Receipt Date: 20140421
  Transmission Date: 20141212
  Serious: Yes (Other)
  Sender: FDA-Public Use
  Company Number: FR-SANOFI-AVENTIS-2013SA090234

PATIENT
  Age: 66 Year
  Sex: Male

DRUGS (11)
  1. TRIATEC [Suspect]
     Indication: MYOCARDIAL INFARCTION
     Route: 048
     Dates: start: 20130521, end: 20130524
  2. TRIATEC [Suspect]
     Indication: MYOCARDIAL INFARCTION
     Route: 048
     Dates: start: 20130525, end: 20130526
  3. LOVENOX [Suspect]
     Indication: ACUTE CORONARY SYNDROME
     Route: 042
     Dates: start: 20130520, end: 20130524
  4. BRILIQUE [Suspect]
     Indication: ACUTE CORONARY SYNDROME
     Dosage: STRENGTH: 90 MG
     Route: 048
     Dates: start: 20130520, end: 20130526
  5. INSPRA [Suspect]
     Indication: PRODUCT USED FOR UNKNOWN INDICATION
     Dosage: STRENGTH: 25 MG
     Route: 048
     Dates: start: 20130521, end: 20130526
  6. INEXIUM [Suspect]
     Indication: PRODUCT USED FOR UNKNOWN INDICATION
     Dosage: STRENGTH: 20 MG
     Route: 048
     Dates: start: 20130521, end: 20130526
  7. VISIPAQUE [Suspect]
     Indication: ARTERIOGRAM CORONARY
     Dosage: STRENGTH: 320 MG/ML
     Route: 042
     Dates: start: 20130520, end: 20130520
  8. LEVETIRACETAM [Concomitant]
  9. KARDEGIC [Concomitant]
  10. TAHOR [Concomitant]
  11. BISOCE [Concomitant]

REACTIONS (2)
  - Rash scarlatiniform [Recovered/Resolved]
  - Pruritus [Recovered/Resolved]
